FAERS Safety Report 5209024-8 (Version None)
Quarter: 2007Q1

REPORT INFORMATION
  Report Type: 
  Country: None (occurrence: None)
  Receive Date: 20070116
  Receipt Date: 20070109
  Transmission Date: 20070707
  Serious: Yes (Hospitalization, Disabling, Other)
  Sender: FDA-Public Use
  Company Number: DE-MERCK-0505DEU00177

PATIENT
  Age: 83 Year
  Sex: Female

DRUGS (13)
  1. FOSAMAX [Suspect]
     Indication: OSTEOPOROSIS
     Route: 048
     Dates: start: 20011011, end: 20050427
  2. METOPROLOL TARTRATE [Concomitant]
     Route: 048
  3. OMEPRAZOLE [Concomitant]
     Route: 048
  4. ISOSORBIDE DINITRATE [Concomitant]
     Route: 048
  5. POLYETHYLENE GLYCOL 3350 AND POTASSIUM CHLORIDE AND SODIUM BICARBONATE [Concomitant]
     Route: 048
  6. SIMVASTATIN [Concomitant]
     Route: 048
  7. ALLOPURINOL [Concomitant]
     Route: 048
  8. TORSEMIDE [Concomitant]
     Route: 048
  9. FENTANYL [Concomitant]
     Route: 061
  10. ASPIRIN [Concomitant]
     Route: 048
  11. DONEPEZIL HYDROCHLORIDE [Concomitant]
     Route: 048
  12. DIPYRONE [Concomitant]
     Route: 048
  13. CALCIUM CARBONATE AND CHOLECALCIFEROL [Concomitant]
     Route: 048

REACTIONS (6)
  - ABSCESS JAW [None]
  - JAW FRACTURE [None]
  - OSTEOMYELITIS [None]
  - OSTEONECROSIS [None]
  - POSTOPERATIVE WOUND INFECTION [None]
  - PSEUDARTHROSIS [None]
